FAERS Safety Report 7229014-3 (Version None)
Quarter: 2011Q1

REPORT INFORMATION
  Report Type: 
  Country: None (occurrence: None)
  Receive Date: 20110117
  Receipt Date: 20110106
  Transmission Date: 20110831
  Serious: Yes (Hospitalization)
  Sender: FDA-Public Use
  Company Number: PHHO2011NL00629

PATIENT
  Sex: Female

DRUGS (4)
  1. COTRIM [Concomitant]
  2. MYCOPHENOLIC ACID [Suspect]
     Indication: STEM CELL TRANSPLANT
     Dosage: 720 MG
     Route: 048
     Dates: start: 20101221
  3. VALGANCICLOVIR HCL [Concomitant]
  4. TACROLIMUS [Concomitant]
     Indication: TRANSPLANT

REACTIONS (2)
  - CYTOMEGALOVIRUS INFECTION [None]
  - RENAL FAILURE [None]
